FAERS Safety Report 18811253 (Version 2)
Quarter: 2021Q1

REPORT INFORMATION
  Report Type: Spontaneous
  Country: US (occurrence: US)
  Receive Date: 20210129
  Receipt Date: 20210203
  Transmission Date: 20210419
  Serious: Yes (Death, Other)
  Sender: FDA-Public Use
  Company Number: US-DSJP-DSU-2021-102194

PATIENT
  Age: 75 Year
  Sex: Male

DRUGS (1)
  1. ENHERTU [Suspect]
     Active Substance: FAM-TRASTUZUMAB DERUXTECAN-NXKI
     Indication: METASTATIC GASTRIC CANCER
     Dosage: 5.4 MG/KG
     Route: 042

REACTIONS (2)
  - Death [Fatal]
  - Off label use [Unknown]
